FAERS Safety Report 11131910 (Version 3)
Quarter: 2015Q2

REPORT INFORMATION
  Report Type: Spontaneous
  Country: US (occurrence: US)
  Receive Date: 20150522
  Receipt Date: 20150625
  Transmission Date: 20150821
  Serious: Yes (Hospitalization, Other)
  Sender: FDA-Public Use
  Company Number: US-GLAXOSMITHKLINE-US2015GSK069489

PATIENT
  Age: 60 Year
  Sex: Male

DRUGS (2)
  1. MELPHALAN SOLUTION FOR INFUSION [Suspect]
     Active Substance: MELPHALAN
     Indication: PLASMA CELL MYELOMA
     Dosage: 200 MG, SINGLE
     Route: 042
     Dates: start: 20110617, end: 20110617
  2. MELPHALAN SOLUTION FOR INFUSION [Suspect]
     Active Substance: MELPHALAN
     Indication: TRANSPLANT

REACTIONS (1)
  - Diarrhoea [Recovered/Resolved]

NARRATIVE: CASE EVENT DATE: 20110627
